FAERS Safety Report 18893293 (Version 5)
Quarter: 2021Q4

REPORT INFORMATION
  Report Type: Other
  Country: BE (occurrence: None)
  Receive Date: 20210215
  Receipt Date: 20211210
  Transmission Date: 20220303
  Serious: No
  Sender: FDA-Public Use
  Company Number: BE-ROCHE-2691099

PATIENT
  Sex: Male
  Weight: 65 kg

DRUGS (13)
  1. OCRELIZUMAB [Suspect]
     Active Substance: OCRELIZUMAB
     Indication: Relapsing-remitting multiple sclerosis
     Route: 042
     Dates: start: 20201002, end: 20201002
  2. OCRELIZUMAB [Suspect]
     Active Substance: OCRELIZUMAB
     Route: 042
     Dates: start: 20201016, end: 20201016
  3. OCRELIZUMAB [Suspect]
     Active Substance: OCRELIZUMAB
     Route: 042
     Dates: start: 20210421, end: 20210421
  4. MELOXICAM [Concomitant]
     Active Substance: MELOXICAM
     Route: 048
     Dates: start: 20200903, end: 20200903
  5. SOLU-MEDROL [Concomitant]
     Active Substance: METHYLPREDNISOLONE SODIUM SUCCINATE
     Indication: Premedication
     Dosage: NEXT DOSE ON 14/OCT/2021
     Route: 042
     Dates: start: 20201002, end: 20201002
  6. SOLU-MEDROL [Concomitant]
     Active Substance: METHYLPREDNISOLONE SODIUM SUCCINATE
     Route: 042
     Dates: start: 20201016, end: 20201016
  7. SOLU-MEDROL [Concomitant]
     Active Substance: METHYLPREDNISOLONE SODIUM SUCCINATE
     Route: 042
     Dates: start: 20210421, end: 20210421
  8. POLARAMINE [Concomitant]
     Active Substance: DEXCHLORPHENIRAMINE MALEATE
     Indication: Premedication
     Dosage: NEXT DOSE ON 14/OCT/2021
     Route: 042
     Dates: start: 20201002, end: 20201002
  9. POLARAMINE [Concomitant]
     Active Substance: DEXCHLORPHENIRAMINE MALEATE
     Route: 042
     Dates: start: 20201016, end: 20201016
  10. POLARAMINE [Concomitant]
     Active Substance: DEXCHLORPHENIRAMINE MALEATE
     Route: 042
     Dates: start: 20210421, end: 20210421
  11. DAFALGAN [Concomitant]
     Active Substance: ACETAMINOPHEN
     Indication: Premedication
     Dosage: NEXT DOSE ON 14/OCT/2021
     Route: 048
     Dates: start: 20201002
  12. DAFALGAN [Concomitant]
     Active Substance: ACETAMINOPHEN
     Route: 048
     Dates: start: 20201016, end: 20201016
  13. DAFALGAN [Concomitant]
     Active Substance: ACETAMINOPHEN
     Route: 048
     Dates: start: 20210421, end: 20210421

REACTIONS (1)
  - COVID-19 [Recovered/Resolved with Sequelae]
